FAERS Safety Report 7120307-7 (Version None)
Quarter: 2010Q4

REPORT INFORMATION
  Report Type: 
  Country: None (occurrence: None)
  Receive Date: 20101123
  Receipt Date: 20101122
  Transmission Date: 20110411
  Serious: Yes (Hospitalization)
  Sender: FDA-Public Use
  Company Number: US-BRISTOL-MYERS SQUIBB COMPANY-15399553

PATIENT
  Age: 63 Year
  Sex: Female

DRUGS (6)
  1. METFORMIN HCL [Suspect]
     Indication: TYPE 2 DIABETES MELLITUS
     Dosage: STARTED:1 YEAR AGO
     Route: 048
  2. GLIMEPIRIDE [Concomitant]
  3. LISINOPRIL [Concomitant]
  4. PRAVASTATIN SODIUM [Concomitant]
  5. METOPROLOL [Concomitant]
  6. JANUVIA [Concomitant]

REACTIONS (2)
  - DEPRESSION [None]
  - DIARRHOEA [None]
